FAERS Safety Report 9262529 (Version 1)
Quarter: 2013Q2

REPORT INFORMATION
  Report Type: Spontaneous
  Country: US (occurrence: US)
  Receive Date: 20130430
  Receipt Date: 20130430
  Transmission Date: 20140414
  Serious: Yes (Other)
  Sender: FDA-Public Use
  Company Number: US-BAYER-2013-051990

PATIENT
  Age: 16 Year
  Sex: Female
  Weight: 49.43 kg

DRUGS (2)
  1. YASMIN [Suspect]
  2. OCELLA [Suspect]

REACTIONS (1)
  - Pulmonary embolism [None]
